FAERS Safety Report 25134198 (Version 2)
Quarter: 2025Q2

REPORT INFORMATION
  Report Type: Report from Study
  Country: CA (occurrence: CA)
  Receive Date: 20250328
  Receipt Date: 20250407
  Transmission Date: 20250717
  Serious: Yes (Other)
  Sender: TAKEDA
  Company Number: CA-TAKEDA-2021TUS053044

PATIENT
  Sex: Female

DRUGS (17)
  1. VEDOLIZUMAB [Suspect]
     Active Substance: VEDOLIZUMAB
     Indication: Crohn^s disease
  2. VEDOLIZUMAB [Suspect]
     Active Substance: VEDOLIZUMAB
  3. VEDOLIZUMAB [Suspect]
     Active Substance: VEDOLIZUMAB
     Indication: Crohn^s disease
     Dosage: 108 MILLIGRAM, Q2WEEKS
     Dates: start: 20211122
  4. BISOPROLOL [Concomitant]
     Active Substance: BISOPROLOL
  5. XELJANZ [Concomitant]
     Active Substance: TOFACITINIB CITRATE
  6. INDOMETHACIN [Concomitant]
     Active Substance: INDOMETHACIN
  7. DIENOGEST [Concomitant]
     Active Substance: DIENOGEST
  8. CIMZIA [Concomitant]
     Active Substance: CERTOLIZUMAB PEGOL
  9. PANTOPRAZOLE SODIUM [Concomitant]
     Active Substance: PANTOPRAZOLE SODIUM
     Dosage: 40 MILLIGRAM, BID
  10. PANTOPRAZOLE SODIUM [Concomitant]
     Active Substance: PANTOPRAZOLE SODIUM
     Dosage: UNK UNK, QD
     Dates: start: 202303
  11. PANTOPRAZOLE SODIUM [Concomitant]
     Active Substance: PANTOPRAZOLE SODIUM
     Dosage: UNK UNK, BID
     Dates: start: 202412
  12. TYLENOL ARTHRITIS PAIN [Concomitant]
     Active Substance: ACETAMINOPHEN
  13. SUCRALFATE [Concomitant]
     Active Substance: SUCRALFATE
  14. IMODIUM [Concomitant]
     Active Substance: LOPERAMIDE HYDROCHLORIDE
  15. BUTYLSCOPOLAMINE BROMIDE [Concomitant]
     Active Substance: BUTYLSCOPOLAMINE BROMIDE
  16. COLESEVELAM HYDROCHLORIDE [Concomitant]
     Active Substance: COLESEVELAM HYDROCHLORIDE
  17. GRAVOL [Concomitant]
     Active Substance: DIMENHYDRINATE

REACTIONS (22)
  - Impaired gastric emptying [Unknown]
  - Gastric ulcer [Unknown]
  - Diarrhoea [Recovered/Resolved]
  - Abdominal pain upper [Recovered/Resolved]
  - Faeces soft [Unknown]
  - Mouth ulceration [Unknown]
  - Gallbladder cholesterolosis [Unknown]
  - Hyperplastic cholecystopathy [Unknown]
  - Hepatic steatosis [Unknown]
  - Gallbladder polyp [Unknown]
  - Chronic gastritis [Unknown]
  - Smooth muscle antibody positive [Unknown]
  - Antinuclear antibody positive [Unknown]
  - Vitamin B12 decreased [Unknown]
  - Blood iron decreased [Unknown]
  - Malaise [Unknown]
  - Abdominal pain [Unknown]
  - Vomiting [Recovered/Resolved]
  - Arthralgia [Recovered/Resolved]
  - Headache [Recovered/Resolved]
  - Nausea [Recovered/Resolved]
  - Back pain [Unknown]
